FAERS Safety Report 6789284-2 (Version None)
Quarter: 2010Q2

REPORT INFORMATION
  Report Type: 
  Country: None (occurrence: None)
  Receive Date: 20100623
  Receipt Date: 20090528
  Transmission Date: 20101027
  Serious: Yes (Other)
  Sender: FDA-Public Use
  Company Number: US-PFIZER INC-2008055325

PATIENT
  Sex: Female

DRUGS (9)
  1. PROVERA [Suspect]
     Indication: HORMONE REPLACEMENT THERAPY
     Dosage: 5 MG, UNK
     Route: 048
     Dates: start: 19890901, end: 20010401
  2. MEDROXYPROGESTERONE ACETATE [Suspect]
     Indication: HORMONE REPLACEMENT THERAPY
     Dosage: UNK
     Route: 048
     Dates: start: 19890901, end: 20010401
  3. PREMARIN [Suspect]
     Indication: HORMONE REPLACEMENT THERAPY
     Dosage: 0.625 MG, UNK
     Dates: start: 19890901, end: 20010401
  4. PREMARIN [Suspect]
     Dosage: 1.25 MG, UNK
     Dates: start: 19890901, end: 20010401
  5. DILTIAZEM [Concomitant]
     Indication: ARRHYTHMIA
     Dosage: UNK
     Dates: start: 19990201
  6. FLONASE [Concomitant]
     Indication: HYPERSENSITIVITY
     Dosage: UNK
     Dates: start: 19970901, end: 20020301
  7. ACETYLSALICYLIC ACID [Concomitant]
     Indication: CARDIAC DISORDER
     Dosage: UNK
     Dates: start: 19990101
  8. DILACOR XR [Concomitant]
     Indication: ARRHYTHMIA
     Dosage: 120 MG, UNK
     Dates: start: 19990225, end: 20011231
  9. ZOCOR [Concomitant]
     Indication: BLOOD CHOLESTEROL INCREASED
     Dosage: UNK
     Dates: start: 20010214, end: 20070101

REACTIONS (1)
  - BREAST CANCER [None]
